FAERS Safety Report 14380548 (Version 2)
Quarter: 2018Q1

REPORT INFORMATION
  Report Type: Report from Study
  Country: CA (occurrence: CA)
  Receive Date: 20180112
  Receipt Date: 20180319
  Transmission Date: 20180509
  Serious: Yes (Other)
  Sender: FDA-Public Use
  Company Number: CA-BAYER-2018-002707

PATIENT
  Age: 70 Year
  Sex: Female

DRUGS (3)
  1. ADEMPAS [Suspect]
     Active Substance: RIOCIGUAT
     Indication: PULMONARY ARTERIAL HYPERTENSION
     Dosage: 2.0 MG, UNK
     Route: 048
     Dates: start: 20170904
  2. UPTRAVI [Concomitant]
     Active Substance: SELEXIPAG
     Indication: PULMONARY HYPERTENSION
  3. CELEBREX [Concomitant]
     Active Substance: CELECOXIB
     Indication: ARTHRITIS
     Dosage: UNK

REACTIONS (9)
  - Choking [Not Recovered/Not Resolved]
  - Eating disorder [Not Recovered/Not Resolved]
  - Lip dry [Not Recovered/Not Resolved]
  - Blood pressure decreased [Not Recovered/Not Resolved]
  - Faeces hard [None]
  - Infrequent bowel movements [Not Recovered/Not Resolved]
  - Oesophageal food impaction [Not Recovered/Not Resolved]
  - Blood pressure abnormal [Unknown]
  - Hiatus hernia [Not Recovered/Not Resolved]
